FAERS Safety Report 18260789 (Version 1)
Quarter: 2020Q3

REPORT INFORMATION
  Report Type: Report from Study
  Country: None (occurrence: US)
  Receive Date: 20200914
  Receipt Date: 20200914
  Transmission Date: 20201103
  Serious: Yes (Other)
  Sender: FDA-Public Use
  Company Number: US-ABBVIE-20K-163-3559784-00

PATIENT
  Sex: Male

DRUGS (2)
  1. VENCLEXTA [Suspect]
     Active Substance: VENETOCLAX
     Indication: ACUTE MYELOID LEUKAEMIA
     Route: 048
     Dates: start: 20200806, end: 2020
  2. VENCLEXTA [Suspect]
     Active Substance: VENETOCLAX
     Route: 048
     Dates: start: 2020

REACTIONS (7)
  - Incontinence [Unknown]
  - Constipation [Unknown]
  - Bedridden [Unknown]
  - Asthenia [Unknown]
  - Urine analysis abnormal [Unknown]
  - Febrile neutropenia [Unknown]
  - Oral papilloma [Unknown]

NARRATIVE: CASE EVENT DATE: 2020
